FAERS Safety Report 8226134-1 (Version None)
Quarter: 2012Q1

REPORT INFORMATION
  Report Type: 
  Country: None (occurrence: None)
  Receive Date: 20120307
  Receipt Date: 20100301
  Transmission Date: 20120608
  Serious: No
  Sender: FDA-Public Use
  Company Number: PHEH2009US10569

PATIENT
  Age: 63 Year
  Sex: Female

DRUGS (1)
  1. AFINITOR [Suspect]
     Indication: BLADDER NEOPLASM
     Dosage: 10 MG, QD, ORAL
     Route: 048
     Dates: start: 20090716, end: 20091115

REACTIONS (6)
  - BLOOD GLUCOSE INCREASED [None]
  - TOXICITY TO VARIOUS AGENTS [None]
  - BLOOD CHOLESTEROL INCREASED [None]
  - OEDEMA PERIPHERAL [None]
  - BLOOD TRIGLYCERIDES INCREASED [None]
  - HYPERTENSION [None]
